FAERS Safety Report 7716884-5 (Version None)
Quarter: 2011Q3

REPORT INFORMATION
  Report Type: 
  Country: None (occurrence: None)
  Receive Date: 20110829
  Receipt Date: 20110816
  Transmission Date: 20111222
  Serious: Yes (Other)
  Sender: FDA-Public Use
  Company Number: KW-GENENTECH-323495

PATIENT
  Sex: Female

DRUGS (5)
  1. AMINOPHYLLIN TAB [Concomitant]
     Indication: PRODUCT USED FOR UNKNOWN INDICATION
  2. XOLAIR [Suspect]
     Indication: ASTHMA
     Dosage: 150 IU/ML, UNKNOWN
     Route: 058
     Dates: start: 20110719, end: 20110802
  3. OXYGEN [Concomitant]
     Indication: PRODUCT USED FOR UNKNOWN INDICATION
  4. XOLAIR [Suspect]
     Dosage: 375 IU/ML, 2/WEEK
     Route: 058
     Dates: start: 20110802
  5. STEROIDS (UNK INGREDIENTS) [Concomitant]
     Indication: PRODUCT USED FOR UNKNOWN INDICATION

REACTIONS (2)
  - ANAPHYLACTIC REACTION [None]
  - ASTHMA [None]
